FAERS Safety Report 9378224 (Version 3)
Quarter: 2014Q4

REPORT INFORMATION
  Report Type: Spontaneous
  Country: US (occurrence: US)
  Receive Date: 20130701
  Receipt Date: 20141010
  Transmission Date: 20150529
  Serious: Yes (Hospitalization, Other)
  Sender: FDA-Public Use
  Company Number: US-009507513-1306USA013090

PATIENT
  Sex: Female
  Weight: 55.78 kg

DRUGS (1)
  1. NUVARING [Suspect]
     Active Substance: ETHINYL ESTRADIOL\ETONOGESTREL
     Indication: CONTRACEPTION
     Dosage: UNK
     Route: 067
     Dates: start: 201011, end: 201106

REACTIONS (3)
  - Hypocalcaemia [Recovered/Resolved]
  - Pulmonary embolism [Unknown]
  - Depression [Unknown]

NARRATIVE: CASE EVENT DATE: 20110609
